FAERS Safety Report 7177193-9 (Version None)
Quarter: 2010Q4

REPORT INFORMATION
  Report Type: 
  Country: None (occurrence: None)
  Receive Date: 20101220
  Receipt Date: 20101206
  Transmission Date: 20110411
  Serious: Yes (Hospitalization)
  Sender: FDA-Public Use
  Company Number: KR-ROCHE-718539

PATIENT
  Age: 46 Year
  Sex: Male

DRUGS (3)
  1. TAMIFLU [Suspect]
     Indication: H1N1 INFLUENZA
     Route: 048
     Dates: start: 20091106, end: 20091115
  2. IDARUBICIN HCL [Suspect]
     Dosage: ON 6 TH DAY OF ADMISSION
     Route: 065
  3. CYTARABINE [Suspect]
     Dosage: ON 6 TH DAY OF ADMISSION
     Route: 065

REACTIONS (3)
  - DRUG INEFFECTIVE [None]
  - NEUTROPENIA [None]
  - PATHOGEN RESISTANCE [None]
